FAERS Safety Report 7067961-6 (Version None)
Quarter: 2010Q4

REPORT INFORMATION
  Report Type: 
  Country: None (occurrence: None)
  Receive Date: 20101020
  Receipt Date: 20101013
  Transmission Date: 20110411
  Serious: Yes (Death)
  Sender: FDA-Public Use
  Company Number: WAES 1010USA01612

PATIENT
  Age: 64 Year

DRUGS (1)
  1. ZOLINZA [Suspect]
     Dates: start: 20100301

REACTIONS (1)
  - DEATH [None]
